FAERS Safety Report 9100466 (Version 6)
Quarter: 2013Q2

REPORT INFORMATION
  Report Type: Spontaneous
  Country: US (occurrence: US)
  Receive Date: 20130215
  Receipt Date: 20130528
  Transmission Date: 20140414
  Serious: Yes (Other)
  Sender: FDA-Public Use
  Company Number: US-PFIZER INC-2013058204

PATIENT
  Age: 62 Year
  Sex: Male

DRUGS (10)
  1. LYRICA [Suspect]
     Indication: PAIN
     Dosage: 75 MG, 4X/DAY
     Dates: end: 20130123
  2. LYRICA [Suspect]
     Indication: BURNING SENSATION
     Dosage: 150 MG, 2X/DAY
     Dates: start: 201302, end: 2013
  3. LYRICA [Suspect]
     Dosage: 150 MG, 3X/DAY
     Dates: start: 2013
  4. NORCO [Suspect]
     Dosage: UNK
  5. ADDERALL [Concomitant]
     Dosage: 30 MG, EVERY DAY
  6. VICODIN ES [Concomitant]
     Indication: PAIN
     Dosage: UNK
  7. VICODIN ES [Concomitant]
     Indication: BURNING SENSATION
  8. SOMA [Concomitant]
     Indication: PAIN
     Dosage: UNK
  9. SOMA [Concomitant]
     Indication: BURNING SENSATION
  10. SELZENTRY [Concomitant]
     Dosage: UNK

REACTIONS (8)
  - Hepatic enzyme abnormal [Unknown]
  - Drug dependence [Unknown]
  - Lung disorder [Unknown]
  - Burning sensation [Unknown]
  - Depression [Unknown]
  - Back pain [Unknown]
  - Pain [Unknown]
  - Drug dispensing error [Unknown]
